FAERS Safety Report 4617828-5 (Version None)
Quarter: 2005Q1

REPORT INFORMATION
  Report Type: 
  Country: None (occurrence: None)
  Receive Date: 20050324
  Receipt Date: 20050309
  Transmission Date: 20050727
  Serious: Yes (Other)
  Sender: FDA-Public Use
  Company Number: US-GLAXOSMITHKLINE-A0548910A

PATIENT
  Age: 16 Year
  Sex: Male

DRUGS (2)
  1. PAXIL [Suspect]
     Indication: DEPRESSION
  2. STRATTERA [Concomitant]

REACTIONS (2)
  - INJURY [None]
  - SEXUAL ASSAULT VICTIM [None]
